FAERS Safety Report 20584536 (Version 2)
Quarter: 2022Q1

REPORT INFORMATION
  Report Type: Report from Study
  Country: CA (occurrence: CA)
  Receive Date: 20220311
  Receipt Date: 20220316
  Transmission Date: 20220423
  Serious: Yes (Other)
  Sender: FDA-Public Use
  Company Number: CA-HLS-202200541

PATIENT
  Age: 32 Year
  Sex: Male
  Weight: 73 kg

DRUGS (6)
  1. CLOZARIL [Suspect]
     Active Substance: CLOZAPINE
     Indication: Schizophrenia
     Dosage: DRUG START DATE: 26-NOV-2019
     Route: 048
  2. CLOZARIL [Suspect]
     Active Substance: CLOZAPINE
     Indication: Schizophrenia
     Dosage: TAKE 4 TABLETS ONCE DAILY AT BEDTIME TOGETHER WITH 2 TABLETS 25MG (TOTAL 450MG)
     Route: 048
  3. CLOZARIL [Suspect]
     Active Substance: CLOZAPINE
     Indication: Schizophrenia
     Dosage: TAKE 2 TABLETS ONCE DAILY AT BEDTIME TOGATHER WITH 4 TABLETS 100 MG (450MG)
     Route: 048
  4. SERTRALINE HYDROCHLORIDE [Concomitant]
     Active Substance: SERTRALINE HYDROCHLORIDE
     Indication: Product used for unknown indication
     Dosage: TAKE 2 CAPSULES NIGHTLY AT BEDTIME
     Route: 048
  5. Covid-19 Vaccination [Concomitant]
     Dosage: DRUG START DATE: 03-SEP-2021?MRNA PFIZER
     Route: 065
  6. Covid-19 Vaccination [Concomitant]
     Dosage: DRUG START DATE: OCT-2021
     Route: 065

REACTIONS (23)
  - Panic attack [Not Recovered/Not Resolved]
  - Hallucination [Unknown]
  - Derealisation [Unknown]
  - Acute myocardial infarction [Unknown]
  - Chest discomfort [Not Recovered/Not Resolved]
  - Chest pain [Unknown]
  - C-reactive protein increased [Recovered/Resolved]
  - Eosinophil count decreased [Recovered/Resolved]
  - Eosinophil count increased [Recovered/Resolved]
  - Anxiety [Not Recovered/Not Resolved]
  - Gamma-glutamyltransferase increased [Unknown]
  - Agitation [Unknown]
  - Nausea [Unknown]
  - Palpitations [Not Recovered/Not Resolved]
  - Restlessness [Unknown]
  - Dyspnoea [Unknown]
  - Sinus tachycardia [Unknown]
  - Hyponatraemia [Recovered/Resolved]
  - Electrocardiogram ST segment abnormal [Unknown]
  - Brief psychotic disorder with marked stressors [Unknown]
  - Myocarditis [Recovered/Resolved]
  - Troponin increased [Recovered/Resolved]
  - Vomiting [Unknown]

NARRATIVE: CASE EVENT DATE: 20190101
